FAERS Safety Report 4862182-7 (Version None)
Quarter: 2005Q4

REPORT INFORMATION
  Report Type: 
  Country: None (occurrence: None)
  Receive Date: 20051130
  Receipt Date: 20041020
  Transmission Date: 20060501
  Serious: Yes (Other)
  Sender: FDA-Public Use
  Company Number: 2004-10-1507

PATIENT

DRUGS (1)
  1. NASONEX [Suspect]
     Dosage: NASAL SPRAY

REACTIONS (1)
  - NASAL SEPTUM PERFORATION [None]
